FAERS Safety Report 5065385-4 (Version None)
Quarter: 2006Q3

REPORT INFORMATION
  Report Type: 
  Country: None (occurrence: None)
  Receive Date: 20060725
  Receipt Date: 20060714
  Transmission Date: 20061208
  Serious: Yes (Other)
  Sender: FDA-Public Use
  Company Number: 2006087124

PATIENT
  Sex: Male

DRUGS (1)
  1. BENADRYL [Suspect]
     Dosage: ONCE, ORAL
     Route: 048
     Dates: start: 20060712, end: 20060712

REACTIONS (3)
  - DRUG SCREEN POSITIVE [None]
  - FALL [None]
  - HALLUCINATIONS, MIXED [None]
